FAERS Safety Report 5168283-0 (Version None)
Quarter: 2006Q4

REPORT INFORMATION
  Report Type: 
  Country: None (occurrence: None)
  Receive Date: 20061208
  Receipt Date: 20061102
  Transmission Date: 20070319
  Serious: Yes (Life-Threatening, Hospitalization, Disabling)
  Sender: FDA-Public Use
  Company Number: US-BRISTOL-MYERS SQUIBB COMPANY-13564877

PATIENT
  Age: 30 Year
  Sex: Female

DRUGS (6)
  1. ABILIFY [Suspect]
     Route: 048
  2. LAMICTAL [Suspect]
     Indication: BIPOLAR DISORDER
     Route: 048
     Dates: start: 20060629, end: 20060701
  3. ZOLOFT [Suspect]
     Route: 048
  4. XANAX [Concomitant]
  5. AMBIEN [Concomitant]
  6. LITHOBID [Concomitant]

REACTIONS (2)
  - ANAPHYLACTIC REACTION [None]
  - STEVENS-JOHNSON SYNDROME [None]
